FAERS Safety Report 22822796 (Version 3)
Quarter: 2025Q4

REPORT INFORMATION
  Report Type: Spontaneous
  Country: EU (occurrence: EU)
  Receive Date: 20230815
  Receipt Date: 20251209
  Transmission Date: 20260117
  Serious: Yes (Hospitalization)
  Sender: ROCHE
  Company Number: EU-ROCHE-3403715

PATIENT
  Age: 52 Year
  Sex: Male

DRUGS (18)
  1. RITUXIMAB [Suspect]
     Active Substance: RITUXIMAB
     Indication: Follicular lymphoma stage IV
     Dosage: CYCLE 1 (DAYS 1, 8, 15, AND 22) AND ON DAY 1 OF EACH 28-DAY CYCLE,
     Route: 042
  2. LENALIDOMIDE [Suspect]
     Active Substance: LENALIDOMIDE
     Indication: Follicular lymphoma stage IV
     Dosage: ON DAYS 1-21 OF THE 28-DAY CYCLE.
     Route: 048
  3. CYCLOPHOSPHAMIDE [Concomitant]
     Active Substance: CYCLOPHOSPHAMIDE
  4. DOXORUBICIN [Concomitant]
     Active Substance: DOXORUBICIN
  5. VINCRISTINE [Concomitant]
     Active Substance: VINCRISTINE
  6. PREDNISONE [Concomitant]
     Active Substance: PREDNISONE
  7. IFOSFAMIDE [Concomitant]
     Active Substance: IFOSFAMIDE
  8. ETOPOSIDE [Concomitant]
     Active Substance: ETOPOSIDE
  9. CARBOPLATIN [Concomitant]
     Active Substance: CARBOPLATIN
  10. GEMCITABINE [Concomitant]
     Active Substance: GEMCITABINE
  11. DEXAMETHASONE [Concomitant]
     Active Substance: DEXAMETHASONE
  12. CISPLATIN [Concomitant]
     Active Substance: CISPLATIN
  13. CYTARABINE [Concomitant]
     Active Substance: CYTARABINE
  14. IDELALISIB [Concomitant]
     Active Substance: IDELALISIB
  15. BENDAMUSTINE [Concomitant]
     Active Substance: BENDAMUSTINE
  16. FLUDARABINE [Concomitant]
     Active Substance: FLUDARABINE PHOSPHATE
  17. MITOXANTRONE [Concomitant]
     Active Substance: MITOXANTRONE HYDROCHLORIDE
  18. ETOPOSIDE [Concomitant]
     Active Substance: ETOPOSIDE

REACTIONS (3)
  - Febrile neutropenia [Recovered/Resolved]
  - Herpes zoster [Recovered/Resolved]
  - Myelodysplastic syndrome [Recovered/Resolved]
